FAERS Safety Report 22636132 (Version 1)
Quarter: 2023Q2

REPORT INFORMATION
  Report Type: Spontaneous
  Country: US (occurrence: US)
  Receive Date: 20230623
  Receipt Date: 20230623
  Transmission Date: 20230722
  Serious: Yes (Other)
  Sender: FDA-Public Use
  Company Number: US-PURDUE PHARMA-USA-2022-0294801

PATIENT
  Sex: Male

DRUGS (3)
  1. SENOKOT [Suspect]
     Active Substance: SENNOSIDES
     Indication: Constipation
     Dosage: ( 2 SENOKOT LAXATIVES GUMMIES)
     Route: 048
  2. SENOKOT [Suspect]
     Active Substance: SENNOSIDES
     Indication: Product used for unknown indication
     Dosage: UNK
     Route: 048
  3. COLACE [Suspect]
     Active Substance: DOCUSATE SODIUM
     Indication: Product used for unknown indication
     Dosage: UNKNOWN
     Route: 048

REACTIONS (5)
  - Faecaloma [Unknown]
  - Diarrhoea [Unknown]
  - Faeces hard [Unknown]
  - Bowel movement irregularity [Unknown]
  - Drug ineffective [Unknown]
